FAERS Safety Report 8366853-X (Version None)
Quarter: 2012Q2

REPORT INFORMATION
  Report Type: 
  Country: None (occurrence: None)
  Receive Date: 20120515
  Receipt Date: 20120515
  Transmission Date: 20120825
  Serious: No
  Sender: FDA-Public Use
  Company Number: None

PATIENT
  Sex: Female
  Weight: 79.8331 kg

DRUGS (2)
  1. ABILIFY [Suspect]
  2. PULMICORT [Suspect]

REACTIONS (4)
  - DRUG HYPERSENSITIVITY [None]
  - PARANOIA [None]
  - TROPONIN INCREASED [None]
  - FEELING ABNORMAL [None]
